FAERS Safety Report 22996758 (Version 4)
Quarter: 2024Q1

REPORT INFORMATION
  Report Type: Spontaneous
  Country: CA (occurrence: CA)
  Receive Date: 20230928
  Receipt Date: 20240130
  Transmission Date: 20240410
  Serious: Yes (Other)
  Sender: FDA-Public Use
  Company Number: CA-CELLTRION INC.-2023CA018676

PATIENT

DRUGS (9)
  1. INFLECTRA [Suspect]
     Active Substance: INFLIXIMAB-DYYB
     Indication: Colitis ulcerative
     Dosage: 5MG/KG, W 0, 2, 6 WEEKS THEN EVERY 8 WEEKS, ROUND UP/DOWN TO NEAREST HUNDRED MG
     Route: 042
     Dates: start: 20230907
  2. INFLECTRA [Suspect]
     Active Substance: INFLIXIMAB-DYYB
     Dosage: 300 MG (5MG/KG), W 0, 2, 6 WKS THEN EVERY 8 WKS, ROUND UP/DOWN TO NEAREST HUNDRED MG(WK 2 INDUCTION)
     Route: 042
     Dates: start: 20230920
  3. INFLECTRA [Suspect]
     Active Substance: INFLIXIMAB-DYYB
     Dosage: 5 MG/KG, W 0, 2, 6 WEEKS THEN EVERY 8 WEEKS, ROUND UP/DOWN TO NEAREST HUNDRED MG
     Route: 042
     Dates: start: 20231018
  4. INFLECTRA [Suspect]
     Active Substance: INFLIXIMAB-DYYB
     Dosage: 5 MG/KG, W 0, 2, 6 WEEKS THEN EVERY 8 WEEKS, ROUND UP/DOWN TO NEAREST HUNDRED MG (300MG, 8 WEEKS)
     Route: 042
     Dates: start: 20231213
  5. MESALAMINE [Concomitant]
     Active Substance: MESALAMINE
     Dosage: 1000 MG
  6. ESCITALOPRAM [Concomitant]
     Active Substance: ESCITALOPRAM OXALATE
     Dosage: 10 MG
  7. MESALAMINE [Concomitant]
     Active Substance: MESALAMINE
     Dosage: 1 DF
     Route: 065
  8. PREDNISONE [Concomitant]
     Active Substance: PREDNISONE
     Dosage: 1 DF
     Route: 065
  9. ZOPICLONE [Concomitant]
     Active Substance: ZOPICLONE
     Dosage: 7.5 MG

REACTIONS (6)
  - Haematochezia [Recovering/Resolving]
  - Arthralgia [Not Recovered/Not Resolved]
  - Pain in extremity [Not Recovered/Not Resolved]
  - Anxiety [Unknown]
  - Rash [Unknown]
  - Pruritus [Unknown]

NARRATIVE: CASE EVENT DATE: 20230101
